FAERS Safety Report 13823769 (Version 1)
Quarter: 2017Q3

REPORT INFORMATION
  Report Type: Spontaneous
  Country: US (occurrence: US)
  Receive Date: 20170802
  Receipt Date: 20170802
  Transmission Date: 20171127
  Serious: Yes (Other)
  Sender: FDA-Public Use
  Company Number: US-BION-006539

PATIENT
  Age: 65 Year
  Sex: Female
  Weight: 89.36 kg

DRUGS (2)
  1. ZYRTEC [Suspect]
     Active Substance: CETIRIZINE HYDROCHLORIDE
     Indication: HYPERSENSITIVITY
     Dosage: DOSE: 1 DF ONCE DAILY
     Route: 048
  2. COD-LIVER OIL [Concomitant]
     Active Substance: FISH OIL

REACTIONS (1)
  - Apnoea [Recovered/Resolved]
